FAERS Safety Report 19960457 (Version 1)
Quarter: 2021Q4

REPORT INFORMATION
  Report Type: Spontaneous
  Country: GB (occurrence: GB)
  Receive Date: 20211015
  Receipt Date: 20211015
  Transmission Date: 20220303
  Serious: Yes (Hospitalization, Other)
  Sender: FDA-Public Use
  Company Number: GB-GILEAD-2021-0552602

PATIENT
  Age: 72 Year
  Sex: Female

DRUGS (1)
  1. YESCARTA [Suspect]
     Active Substance: AXICABTAGENE CILOLEUCEL
     Indication: Follicular lymphoma
     Route: 065

REACTIONS (7)
  - Pancytopenia [Unknown]
  - Endotracheal intubation [Recovered/Resolved]
  - Immune effector cell-associated neurotoxicity syndrome [Unknown]
  - Pyrexia [Unknown]
  - Hypoxia [Unknown]
  - Neutropenia [Unknown]
  - Cytokine release syndrome [Recovered/Resolved]
